FAERS Safety Report 20849749 (Version 2)
Quarter: 2022Q2

REPORT INFORMATION
  Report Type: Spontaneous
  Country: US (occurrence: US)
  Receive Date: 20220519
  Receipt Date: 20220607
  Transmission Date: 20220721
  Serious: Yes (Hospitalization)
  Sender: FDA-Public Use
  Company Number: US-GLAXOSMITHKLINE-US2022079481

PATIENT

DRUGS (2)
  1. ZEJULA [Suspect]
     Active Substance: NIRAPARIB
     Indication: Ovarian cancer
     Dosage: 200 MG, QD
     Route: 048
     Dates: start: 20220428, end: 20220508
  2. ZEJULA [Suspect]
     Active Substance: NIRAPARIB
     Dosage: UNK
     Dates: start: 20220527

REACTIONS (19)
  - Hospitalisation [Unknown]
  - Fatigue [Unknown]
  - Decreased appetite [Unknown]
  - Back pain [Unknown]
  - Jaundice [Unknown]
  - Laboratory test abnormal [Unknown]
  - Platelet count decreased [Unknown]
  - White blood cell count decreased [Unknown]
  - Hepatic function abnormal [Not Recovered/Not Resolved]
  - Cholelithiasis [Unknown]
  - Pain [Unknown]
  - Abdominal discomfort [Unknown]
  - Chromaturia [Unknown]
  - Blood bilirubin increased [Unknown]
  - Gallbladder operation [Unknown]
  - Decreased appetite [Unknown]
  - Chromaturia [Unknown]
  - Nausea [Unknown]
  - Vomiting [Unknown]
